FAERS Safety Report 16241431 (Version 1)
Quarter: 2019Q2

REPORT INFORMATION
  Report Type: Spontaneous
  Country: CN (occurrence: CN)
  Receive Date: 20190426
  Receipt Date: 20190426
  Transmission Date: 20190711
  Serious: Yes (Hospitalization)
  Sender: FDA-Public Use
  Company Number: CN-PROVELL PHARMACEUTICALS-2066263

PATIENT
  Age: 42 Year
  Sex: Male

DRUGS (3)
  1. EUTHYROX [Suspect]
     Active Substance: LEVOTHYROXINE SODIUM
     Indication: HYPOTHYROIDISM
     Route: 048
     Dates: start: 2017
  2. EUTHYROX [Suspect]
     Active Substance: LEVOTHYROXINE SODIUM
     Route: 048
  3. EUTHYROX [Suspect]
     Active Substance: LEVOTHYROXINE SODIUM
     Route: 048
     Dates: start: 20190320

REACTIONS (6)
  - Asthenia [None]
  - Headache [None]
  - Condition aggravated [None]
  - Nasopharyngitis [None]
  - Arthralgia [None]
  - Hyperhidrosis [None]

NARRATIVE: CASE EVENT DATE: 20190301
